FAERS Safety Report 10240658 (Version 1)
Quarter: 2014Q2

REPORT INFORMATION
  Report Type: Spontaneous
  Country: GB (occurrence: GB)
  Receive Date: 20140617
  Receipt Date: 20140617
  Transmission Date: 20141212
  Serious: Yes (Disabling, Other)
  Sender: FDA-Public Use
  Company Number: GB-BAYER-2014-086270

PATIENT
  Age: 23 Year
  Sex: Female
  Weight: 78 kg

DRUGS (9)
  1. YASMIN, FILM-COATED TABLETS, 0.03 MG/3 MG [Suspect]
     Indication: DYSMENORRHOEA
     Dosage: UNK
     Route: 048
     Dates: start: 20111001, end: 20140531
  2. ACETYLSALICYLIC ACID (} 100 MG) [Concomitant]
  3. IBUPROFEN [Concomitant]
  4. LEVOTHYROXINE [Concomitant]
  5. MEFENAMIC ACID [Concomitant]
  6. PARACETAMOL [Concomitant]
  7. SULFASALAZINE [Concomitant]
  8. VITAMIN C [Concomitant]
  9. VITAMIN D3 [Concomitant]

REACTIONS (5)
  - Joint swelling [Not Recovered/Not Resolved]
  - Arthralgia [Not Recovered/Not Resolved]
  - Rheumatoid arthritis [Not Recovered/Not Resolved]
  - Musculoskeletal stiffness [None]
  - Fatigue [Not Recovered/Not Resolved]
